FAERS Safety Report 17220026 (Version 1)
Quarter: 2019Q4

REPORT INFORMATION
  Report Type: Spontaneous
  Country: US (occurrence: US)
  Receive Date: 20191231
  Receipt Date: 20191231
  Transmission Date: 20200122
  Serious: No
  Sender: FDA-Public Use
  Company Number: US-SA-2019SA360772

PATIENT
  Age: 31 Year
  Sex: Female

DRUGS (4)
  1. FEMYNOR [Concomitant]
     Active Substance: ETHINYL ESTRADIOL\NORGESTIMATE
  2. DUPIXENT [Suspect]
     Active Substance: DUPILUMAB
     Indication: DERMATITIS ATOPIC
     Dosage: 1 DF, QOW
     Route: 058
     Dates: start: 201910
  3. TRIAMCINOLONE ACETONIDE. [Concomitant]
     Active Substance: TRIAMCINOLONE ACETONIDE
  4. CLOBETASOL PROPIONATE. [Concomitant]
     Active Substance: CLOBETASOL PROPIONATE

REACTIONS (1)
  - Dermatitis atopic [Unknown]
